FAERS Safety Report 24200296 (Version 1)
Quarter: 2024Q3

REPORT INFORMATION
  Report Type: Report from Study
  Country: GB (occurrence: GB)
  Receive Date: 20240812
  Receipt Date: 20240812
  Transmission Date: 20241016
  Serious: Yes (Death)
  Sender: BAUSCH AND LOMB
  Company Number: GB-LEO Pharma-372610

PATIENT
  Age: 65 Year
  Sex: Female

DRUGS (1)
  1. BRODALUMAB [Suspect]
     Active Substance: BRODALUMAB
     Indication: Psoriasis
     Dosage: EXPIRY DATE: UNKNOWN
     Route: 058
     Dates: start: 20200910

REACTIONS (1)
  - Death [Fatal]
